FAERS Safety Report 5405086-3 (Version None)
Quarter: 2007Q3

REPORT INFORMATION
  Report Type: 
  Country: None (occurrence: None)
  Receive Date: 20070803
  Receipt Date: 20070724
  Transmission Date: 20080115
  Serious: Yes (Hospitalization, Other)
  Sender: FDA-Public Use
  Company Number: US-ROCHE-502018

PATIENT
  Age: 30 Year
  Sex: Female

DRUGS (2)
  1. XELODA [Suspect]
     Indication: BREAST CANCER
     Dosage: DOSAGE FORM IS ^PILLS^
     Route: 048
     Dates: start: 20070531, end: 20070609
  2. TYKERB [Concomitant]
     Dosage: DOSE FORM IS ^PILLS^

REACTIONS (19)
  - ANOREXIA [None]
  - ASTHENIA [None]
  - BURNING SENSATION [None]
  - CYSTITIS [None]
  - DEPRESSION [None]
  - DIARRHOEA HAEMORRHAGIC [None]
  - DISCOMFORT [None]
  - DYSPHAGIA [None]
  - OEDEMA PERIPHERAL [None]
  - PAIN [None]
  - PAIN IN EXTREMITY [None]
  - PHARYNGEAL ULCERATION [None]
  - PLANTAR ERYTHEMA [None]
  - PYREXIA [None]
  - SKIN EXFOLIATION [None]
  - STOMATITIS [None]
  - THROAT TIGHTNESS [None]
  - THROMBOSIS [None]
  - TINNITUS [None]
